FAERS Safety Report 14562073 (Version 2)
Quarter: 2018Q3

REPORT INFORMATION
  Report Type: Spontaneous
  Country: US (occurrence: US)
  Receive Date: 20180222
  Receipt Date: 20180704
  Transmission Date: 20181010
  Serious: No
  Sender: FDA-Public Use
  Company Number: US-PFIZER INC-2018071672

PATIENT
  Age: 72 Year
  Sex: Female

DRUGS (1)
  1. XELJANZ XR [Suspect]
     Active Substance: TOFACITINIB CITRATE
     Indication: RHEUMATOID ARTHRITIS
     Dosage: 11 MG, 1X/DAY
     Route: 048

REACTIONS (6)
  - Influenza [Unknown]
  - Sinus congestion [Unknown]
  - Cough [Unknown]
  - Oral mucosal blistering [Unknown]
  - Dysphonia [Unknown]
  - Infection [Unknown]
